FAERS Safety Report 19963200 (Version 1)
Quarter: 2021Q4

REPORT INFORMATION
  Report Type: Spontaneous
  Country: US (occurrence: US)
  Receive Date: 20211016
  Receipt Date: 20211016
  Transmission Date: 20220303
  Serious: Yes (Other)
  Sender: FDA-Public Use
  Company Number: None

PATIENT
  Age: 67 Year
  Sex: Female
  Weight: 141.75 kg

DRUGS (1)
  1. SEMAGLUTIDE [Suspect]
     Active Substance: SEMAGLUTIDE
     Indication: Obesity
     Dosage: ?          OTHER FREQUENCY:WEEKLY;
     Route: 058
     Dates: start: 20210713, end: 20211016

REACTIONS (7)
  - Gastrointestinal disorder [None]
  - Fatigue [None]
  - Depression [None]
  - Disturbance in attention [None]
  - Asthenia [None]
  - Binge eating [None]
  - Frustration tolerance decreased [None]

NARRATIVE: CASE EVENT DATE: 20211016
